FAERS Safety Report 15321458 (Version 3)
Quarter: 2018Q4

REPORT INFORMATION
  Report Type: Report from Study
  Country: AU (occurrence: AU)
  Receive Date: 20180827
  Receipt Date: 20180904
  Transmission Date: 20190204
  Serious: Yes (Death)
  Sender: FDA-Public Use
  Company Number: AU-PFIZER INC-2011107957

PATIENT
  Age: 28 Year
  Sex: Male

DRUGS (7)
  1. CODEINE [Interacting]
     Active Substance: CODEINE
     Dosage: UNK
  2. TETRAHYDROCANNABINOL [Interacting]
     Active Substance: DRONABINOL
     Dosage: UNK
  3. CITALOPRAM [Interacting]
     Active Substance: CITALOPRAM HYDROBROMIDE
     Dosage: UNK
  4. METHYLENEDIOXYMETHAMPHETAMINE [Interacting]
     Active Substance: MIDOMAFETAMINE
     Dosage: UNK
  5. METHAMPHETAMINE [Interacting]
     Active Substance: METHAMPHETAMINE
     Dosage: UNK
  6. MORPHINE SULFATE. [Suspect]
     Active Substance: MORPHINE SULFATE
     Dosage: UNK
  7. AMFETAMINE SULFATE [Interacting]
     Active Substance: AMPHETAMINE SULFATE
     Dosage: UNK

REACTIONS (2)
  - Toxicity to various agents [Fatal]
  - Drug interaction [Fatal]
